FAERS Safety Report 4395022-3 (Version None)
Quarter: 2004Q3

REPORT INFORMATION
  Report Type: 
  Country: None (occurrence: None)
  Receive Date: 20040706
  Receipt Date: 20040622
  Transmission Date: 20050211
  Serious: Yes (Disabling)
  Sender: FDA-Public Use
  Company Number: WAES 0304USA01546

PATIENT
  Sex: Female

DRUGS (8)
  1. ZOCOR [Suspect]
     Dosage: SEE IMAGE
     Route: 048
     Dates: start: 20020401, end: 20030301
  2. ZOCOR [Suspect]
     Dosage: SEE IMAGE
     Route: 048
     Dates: end: 20040301
  3. PRINZONE 40 MG [Suspect]
     Dosage: 40 MG/DAILY/
     Dates: start: 20030401
  4. COUMADIN [Suspect]
     Dosage: 5 MG/DAILY/
  5. ALBENDAZOLE UNK [Suspect]
     Dosage: 1 TABLET/DAILY
  6. FOSAMAX [Concomitant]
  7. ATENOLOL [Concomitant]
  8. DIGOXIN [Concomitant]

REACTIONS (10)
  - ADVERSE EVENT [None]
  - ALOPECIA [None]
  - ARTHRITIS [None]
  - ASTHENIA [None]
  - DEPRESSION [None]
  - ECZEMA [None]
  - FIBROMYALGIA [None]
  - HOARSENESS [None]
  - MENTAL IMPAIRMENT [None]
  - SPEECH DISORDER [None]
